FAERS Safety Report 8815651 (Version 3)
Quarter: 2012Q4

REPORT INFORMATION
  Report Type: Report from Study
  Country: AU (occurrence: AU)
  Receive Date: 20120928
  Receipt Date: 20121025
  Transmission Date: 20130627
  Serious: Yes (Hospitalization)
  Sender: FDA-Public Use
  Company Number: AU-TEVA-332809USA

PATIENT
  Age: 71 Year
  Sex: Female
  Weight: 80.1 kg

DRUGS (11)
  1. TREANDA [Suspect]
     Indication: B-CELL LYMPHOMA
     Dosage: UID/QD
     Route: 042
     Dates: start: 20111122, end: 20111123
  2. TREANDA [Suspect]
     Dosage: UID/QD
     Route: 042
     Dates: start: 20111213, end: 20111214
  3. TREANDA [Suspect]
     Dosage: UID/QD
     Route: 042
     Dates: start: 20120117, end: 20120118
  4. TREANDA [Suspect]
     Dosage: UID/QD
     Route: 042
     Dates: start: 20120207, end: 20120208
  5. TREANDA [Suspect]
     Dosage: UID/QD
     Route: 042
     Dates: start: 20120320, end: 20120321
  6. TREANDA [Suspect]
     Dosage: UID/QD
     Route: 042
     Dates: start: 20120418, end: 20120419
  7. ATACAND [Concomitant]
     Indication: HYPERTENSION
     Dosage: 8 Milligram Daily;
     Route: 048
     Dates: start: 20100513
  8. NORVASC [Concomitant]
     Dates: start: 20060515
  9. ALEPRAM [Concomitant]
     Dates: start: 20110222
  10. PREDNISONE ACETATE [Concomitant]
     Dates: start: 20111224
  11. PROZAC [Concomitant]
     Dates: start: 20120311

REACTIONS (4)
  - Bone pain [Recovered/Resolved with Sequelae]
  - Fatigue [Recovered/Resolved with Sequelae]
  - Pyrexia [Recovered/Resolved]
  - Hypomagnesaemia [Recovered/Resolved]
